FAERS Safety Report 7509289-3 (Version None)
Quarter: 2011Q2

REPORT INFORMATION
  Report Type: 
  Country: None (occurrence: None)
  Receive Date: 20110527
  Receipt Date: 20110520
  Transmission Date: 20111010
  Serious: Yes (Hospitalization)
  Sender: FDA-Public Use
  Company Number: US-ROCHE-763216

PATIENT
  Age: 68 Year
  Sex: Female

DRUGS (5)
  1. BONIVA [Suspect]
     Indication: OSTEOPOROSIS
     Route: 042
     Dates: start: 20110124
  2. PROTONIX [Concomitant]
     Dosage: DOSE: 40
     Route: 048
  3. LOTREL [Concomitant]
     Indication: HYPERTENSION
     Dosage: DOSE: 10/2.5; FREQUENCY: DAILY
     Route: 048
  4. ENTOCORT EC [Concomitant]
     Dosage: DOSE: 09; FREQUENCY: DAILY
     Route: 048
  5. CYMBALTA [Concomitant]
     Dosage: DOSE: 30
     Route: 048

REACTIONS (5)
  - INTERSTITIAL LUNG DISEASE [None]
  - ILL-DEFINED DISORDER [None]
  - DIVERTICULITIS [None]
  - BRONCHITIS [None]
  - COUGH [None]
